FAERS Safety Report 9846308 (Version 1)
Quarter: 2014Q1

REPORT INFORMATION
  Report Type: Spontaneous
  Country: US (occurrence: US)
  Receive Date: 20140127
  Receipt Date: 20140127
  Transmission Date: 20141002
  Serious: No
  Sender: FDA-Public Use
  Company Number: US-TEVA-458969USA

PATIENT
  Age: 33 Year
  Sex: Female
  Weight: 85.81 kg

DRUGS (1)
  1. PLAN B [Suspect]
     Indication: POST COITAL CONTRACEPTION
     Route: 048
     Dates: start: 20140116, end: 20140116

REACTIONS (1)
  - Expired drug administered [Unknown]
